FAERS Safety Report 19667803 (Version 1)
Quarter: 2021Q3

REPORT INFORMATION
  Report Type: Spontaneous
  Country: CA (occurrence: CA)
  Receive Date: 20210806
  Receipt Date: 20210806
  Transmission Date: 20211014
  Serious: Yes (Other)
  Sender: FDA-Public Use
  Company Number: CA-TEVA-2021-CA-1938936

PATIENT
  Age: 44 Year
  Sex: Female

DRUGS (9)
  1. ESOMEPRAZOLE MAGNESIUM TRIHYDRATE [Suspect]
     Active Substance: ESOMEPRAZOLE MAGNESIUM
     Indication: PRODUCT USED FOR UNKNOWN INDICATION
     Route: 048
  2. PREDNISONE. [Concomitant]
     Active Substance: PREDNISONE
     Indication: RHEUMATOID ARTHRITIS
     Dosage: 10 MILLIGRAM DAILY;
  3. CIPRO CIPROFLOXACIN] [Concomitant]
     Route: 065
  4. DESOXIMETASONE. [Concomitant]
     Active Substance: DESOXIMETASONE
  5. CORTISONE [HYDROCORTISONE] [Concomitant]
     Active Substance: HYDROCORTISONE
  6. METHOTREXATE. [Concomitant]
     Active Substance: METHOTREXATE
     Route: 065
  7. ESOMEPRAZOLE MAGNESIUM TRIHYDRATE [Suspect]
     Active Substance: ESOMEPRAZOLE MAGNESIUM
     Route: 065
  8. CIPRO [Concomitant]
     Active Substance: CIPROFLOXACIN HYDROCHLORIDE
  9. METHOTREXATE. [Concomitant]
     Active Substance: METHOTREXATE
     Indication: RHEUMATOID ARTHRITIS

REACTIONS (5)
  - Urinary tract infection [Unknown]
  - Pulmonary embolism [Unknown]
  - Arthritis [Unknown]
  - Whipple^s disease [Unknown]
  - Phlebitis [Unknown]
